FAERS Safety Report 12387502 (Version 2)
Quarter: 2016Q3

REPORT INFORMATION
  Report Type: Spontaneous
  Country: GB (occurrence: GB)
  Receive Date: 20160520
  Receipt Date: 20160826
  Transmission Date: 20161109
  Serious: Yes (Other)
  Sender: FDA-Public Use
  Company Number: GB-AUROBINDO-AUR-APL-2016-05950

PATIENT
  Sex: Female

DRUGS (3)
  1. AMITRIPTYLIN [Suspect]
     Active Substance: AMITRIPTYLINE
     Indication: PRODUCT USED FOR UNKNOWN INDICATION
     Route: 065
  2. CIPROFLOXACIN. [Suspect]
     Active Substance: CIPROFLOXACIN
     Indication: INFECTION
     Dosage: UNK
     Route: 065
     Dates: start: 201505
  3. PREGABALIN. [Suspect]
     Active Substance: PREGABALIN
     Indication: PRODUCT USED FOR UNKNOWN INDICATION
     Dosage: 600 MG, UNK
     Route: 065

REACTIONS (14)
  - Hypoaesthesia [Unknown]
  - Paraesthesia [Unknown]
  - Tendonitis [Unknown]
  - Pain in extremity [Unknown]
  - Tendon pain [Unknown]
  - Pain [Unknown]
  - Neurotoxicity [Unknown]
  - Mental impairment [Unknown]
  - Depression [Unknown]
  - Nerve injury [Unknown]
  - Neuropathy peripheral [Unknown]
  - Feeling abnormal [Unknown]
  - Burning sensation [Unknown]
  - Musculoskeletal stiffness [Unknown]
